FAERS Safety Report 19391910 (Version 4)
Quarter: 2024Q1

REPORT INFORMATION
  Report Type: Spontaneous
  Country: US (occurrence: US)
  Receive Date: 20210608
  Receipt Date: 20240131
  Transmission Date: 20240410
  Serious: No
  Sender: FDA-Public Use
  Company Number: US-RHYTHM PHARMACEUTICALS, INC.-2021RHM000018

PATIENT
  Age: 38 Year
  Sex: Male

DRUGS (13)
  1. IMCIVREE [Suspect]
     Active Substance: SETMELANOTIDE
     Indication: Obesity
     Dosage: 3MG (0.3ML)
     Route: 058
     Dates: start: 20210416
  2. IMCIVREE [Suspect]
     Active Substance: SETMELANOTIDE
     Indication: Off label use
     Dosage: 2MG (0.2ML)
     Route: 058
  3. IMCIVREE [Suspect]
     Active Substance: SETMELANOTIDE
     Dosage: 3 MG (0.3 ML)
     Route: 058
     Dates: start: 20210423
  4. IMCIVREE [Suspect]
     Active Substance: SETMELANOTIDE
     Dosage: 3 MG (0.3 ML)
     Route: 058
  5. Covid Vaccine [Concomitant]
     Indication: Immunisation
     Route: 065
  6. ACETAZOLAMIDE [Concomitant]
     Active Substance: ACETAZOLAMIDE
     Indication: Product used for unknown indication
     Route: 065
  7. DULOXETINE [Concomitant]
     Active Substance: DULOXETINE
     Indication: Product used for unknown indication
     Route: 065
  8. EFFEXOR XR [Concomitant]
     Active Substance: VENLAFAXINE HYDROCHLORIDE
     Indication: Product used for unknown indication
     Route: 065
  9. FENOFIBRATE [Concomitant]
     Active Substance: FENOFIBRATE
     Indication: Product used for unknown indication
     Route: 065
  10. PRAZOSIN [Concomitant]
     Active Substance: PRAZOSIN
     Indication: Product used for unknown indication
     Route: 065
  11. RIZATRIPTAN [Concomitant]
     Active Substance: RIZATRIPTAN
     Indication: Product used for unknown indication
     Route: 065
  12. SUMATRIPTAN [Concomitant]
     Active Substance: SUMATRIPTAN
     Indication: Product used for unknown indication
     Route: 065
  13. ALLOPURINOL [Concomitant]
     Active Substance: ALLOPURINOL
     Indication: Product used for unknown indication
     Route: 065

REACTIONS (13)
  - Hunger [Unknown]
  - Off label use [Not Recovered/Not Resolved]
  - Product dose omission issue [Not Recovered/Not Resolved]
  - Decreased appetite [Unknown]
  - Hair growth abnormal [Not Recovered/Not Resolved]
  - COVID-19 [Unknown]
  - Increased appetite [Not Recovered/Not Resolved]
  - Hair colour changes [Unknown]
  - Injection site mass [Unknown]
  - Depression [Unknown]
  - Fatigue [Unknown]
  - Skin discolouration [Not Recovered/Not Resolved]
  - Skin hyperpigmentation [Not Recovered/Not Resolved]

NARRATIVE: CASE EVENT DATE: 20210416
